FAERS Safety Report 10614519 (Version 2)
Quarter: 2014Q4

REPORT INFORMATION
  Report Type: Spontaneous
  Country: US (occurrence: US)
  Receive Date: 20141129
  Receipt Date: 20141208
  Transmission Date: 20150529
  Serious: No
  Sender: FDA-Public Use
  Company Number: US-009507513-1411USA011265

PATIENT
  Sex: Female
  Weight: 106.58 kg

DRUGS (1)
  1. NEXPLANON [Suspect]
     Active Substance: ETONOGESTREL
     Indication: CONTRACEPTION
     Dosage: 1 ROD, 68 MG
     Route: 059
     Dates: start: 20140113

REACTIONS (5)
  - Application site scab [Not Recovered/Not Resolved]
  - Medical device complication [Unknown]
  - Application site erythema [Not Recovered/Not Resolved]
  - Acne [Not Recovered/Not Resolved]
  - Application site pain [Not Recovered/Not Resolved]
